FAERS Safety Report 9871227 (Version 2)
Quarter: 2014Q1

REPORT INFORMATION
  Report Type: Spontaneous
  Country: US (occurrence: US)
  Receive Date: 20140205
  Receipt Date: 20140228
  Transmission Date: 20141002
  Serious: Yes (Other)
  Sender: FDA-Public Use
  Company Number: US-BAYER-2014-014381

PATIENT
  Age: 20 Year
  Sex: Female

DRUGS (1)
  1. MIRENA [Suspect]
     Indication: CONTRACEPTION
     Dosage: 20 MCG/24HR, CONT
     Route: 015
     Dates: start: 20100116, end: 20100315

REACTIONS (14)
  - Uterine perforation [None]
  - Abdominal pain [None]
  - Abdominal pain lower [None]
  - Medical device complication [None]
  - Injury [None]
  - Emotional distress [None]
  - Uterine fibrosis [None]
  - Discomfort [None]
  - Depression [None]
  - Anxiety [None]
  - Depressed mood [None]
  - Fear [None]
  - Internal injury [None]
  - Device issue [None]
